FAERS Safety Report 7973852-6 (Version None)
Quarter: 2011Q4

REPORT INFORMATION
  Report Type: 
  Country: None (occurrence: None)
  Receive Date: 20111213
  Receipt Date: 20111208
  Transmission Date: 20120403
  Serious: Yes (Other)
  Sender: FDA-Public Use
  Company Number: US-ROCHE-783937

PATIENT
  Sex: Female
  Weight: 69.008 kg

DRUGS (1)
  1. ACCUTANE [Suspect]
     Indication: ACNE
     Route: 048
     Dates: start: 20030319, end: 20030904

REACTIONS (7)
  - IRRITABLE BOWEL SYNDROME [None]
  - ACNE [None]
  - CROHN'S DISEASE [None]
  - COLITIS ULCERATIVE [None]
  - DEPRESSION [None]
  - INFLAMMATORY BOWEL DISEASE [None]
  - ANXIETY [None]
